FAERS Safety Report 4977484-3 (Version None)
Quarter: 2006Q2

REPORT INFORMATION
  Report Type: 
  Country: None (occurrence: None)
  Receive Date: 20060418
  Receipt Date: 20060418
  Transmission Date: 20061013
  Serious: No
  Sender: FDA-Public Use
  Company Number: None

PATIENT

DRUGS (1)
  1. TACROLIMUS POWDER SPECTRUM CHEMICAL [Suspect]
     Indication: IMMUNOSUPPRESSION
     Dates: start: 20060131, end: 20060315

REACTIONS (2)
  - DRUG LEVEL DECREASED [None]
  - THERAPEUTIC RESPONSE UNEXPECTED WITH DRUG SUBSTITUTION [None]
